FAERS Safety Report 5151027-6 (Version None)
Quarter: 2006Q4

REPORT INFORMATION
  Report Type: 
  Country: None (occurrence: None)
  Receive Date: 20061115
  Receipt Date: 20061107
  Transmission Date: 20070319
  Serious: Yes (Hospitalization, Other)
  Sender: FDA-Public Use
  Company Number: 2006UW22338

PATIENT
  Age: 62 Year
  Sex: Male
  Weight: 84.5 kg

DRUGS (2)
  1. PRILOSEC OTC [Suspect]
     Indication: GASTROOESOPHAGEAL REFLUX DISEASE
     Route: 048
     Dates: start: 20051101
  2. VITAMINS [Concomitant]

REACTIONS (6)
  - ARRHYTHMIA [None]
  - BRADYCARDIA [None]
  - DIZZINESS [None]
  - HYPERHIDROSIS [None]
  - SUPRAVENTRICULAR TACHYCARDIA [None]
  - WEIGHT INCREASED [None]
